FAERS Safety Report 18700312 (Version 2)
Quarter: 2021Q1

REPORT INFORMATION
  Report Type: Spontaneous
  Country: US (occurrence: US)
  Receive Date: 20210105
  Receipt Date: 20210329
  Transmission Date: 20210419
  Serious: Yes (Other)
  Sender: FDA-Public Use
  Company Number: US-GW PHARMA-202012USGW04579

PATIENT

DRUGS (5)
  1. EPIDIOLEX [Suspect]
     Active Substance: CANNABIDIOL
     Dosage: 5.16 MG/KG, 40 MILLIGRAM, BID
     Dates: start: 20191202, end: 201912
  2. EPIDIOLEX [Suspect]
     Active Substance: CANNABIDIOL
     Indication: LENNOX-GASTAUT SYNDROME
     Dosage: 20.64 MG/KG/DAY, 160 MILLIGRAM, BID
     Route: 048
     Dates: start: 202011
  3. EPIDIOLEX [Suspect]
     Active Substance: CANNABIDIOL
     Dosage: 10.32 MG/KG, 80 MILLIGRAM BID
     Dates: start: 201912, end: 202010
  4. EPIDIOLEX [Suspect]
     Active Substance: CANNABIDIOL
     Dosage: 25.8 MG/KG, 200 MILLIGRAM BID
     Dates: start: 2020
  5. CLOBAZAM. [Concomitant]
     Active Substance: CLOBAZAM
     Indication: PRODUCT USED FOR UNKNOWN INDICATION
     Dosage: 2.5 MG/ML, BID
     Route: 065

REACTIONS (6)
  - Gastrostomy tube site complication [Unknown]
  - Condition aggravated [Unknown]
  - Product prescribing issue [Unknown]
  - Product dose omission issue [Unknown]
  - Seizure [Unknown]
  - Seizure [Not Recovered/Not Resolved]

NARRATIVE: CASE EVENT DATE: 2020
